FAERS Safety Report 19005450 (Version 2)
Quarter: 2021Q1

REPORT INFORMATION
  Report Type: Spontaneous
  Country: PL (occurrence: PL)
  Receive Date: 20210313
  Receipt Date: 20210327
  Transmission Date: 20210420
  Serious: Yes (Other)
  Sender: FDA-Public Use
  Company Number: NVSC2021PL051386

PATIENT
  Age: 59 Year
  Sex: Male

DRUGS (10)
  1. CARFILZOMIB [Suspect]
     Active Substance: CARFILZOMIB
     Indication: PLASMA CELL MYELOMA
     Dosage: 20 MG/M2, (20 MILLIGRAM/SQ. METER DAY 1 AND 2 OF CYCLE 1)
     Route: 065
  2. DEXAMETHASONE. [Concomitant]
     Active Substance: DEXAMETHASONE
     Indication: PLASMA CELL MYELOMA
     Dosage: 40 MILLIGRAM, QD ON DAYS, 1?4, 9?2 AND 717?20 OF EVERY 28 DAYS
     Route: 048
  3. CARFILZOMIB [Suspect]
     Active Substance: CARFILZOMIB
     Dosage: 27 MG/M2, (27 MILLIGRAM/SQ. METER DAYS OF CYCLE 8,9,15,16)
     Route: 065
  4. DEXAMETHASONE. [Concomitant]
     Active Substance: DEXAMETHASONE
     Dosage: 20 MG, (DAY 1, 2, 4, 5, 8, 9, 11, 12)
     Route: 048
  5. CYCLOPHOSPHAMIDE. [Concomitant]
     Active Substance: CYCLOPHOSPHAMIDE
     Indication: PRODUCT USED FOR UNKNOWN INDICATION
     Dosage: UNK
     Route: 065
     Dates: start: 2017
  6. BORTEZOMIB. [Concomitant]
     Active Substance: BORTEZOMIB
     Indication: PLASMA CELL MYELOMA
     Dosage: 1.3 MILLIGRAM/SQ. METER, DAY 1, 4, 8, 11
     Route: 065
     Dates: start: 2020
  7. FILGRASTIM [Suspect]
     Active Substance: FILGRASTIM
     Indication: HAEMATOPOIETIC STEM CELL MOBILISATION
     Dosage: UNK
     Route: 065
     Dates: start: 2017
  8. DARATUMUMAB [Concomitant]
     Active Substance: DARATUMUMAB
     Indication: PLASMA CELL MYELOMA
     Dosage: 16 MILLIGRAM/KILOGRAM, ONCE A WEEK N CYCLE 1?3 AND VERY THREE WEEKS IN CYCLE 4?8
     Route: 065
     Dates: start: 2020
  9. LENALIDOMIDE [Concomitant]
     Active Substance: LENALIDOMIDE
     Indication: PLASMA CELL MYELOMA
     Dosage: 25 MILLIGRAM, ON DAYS 1?21 IN REPAETED 28 DAYS  CYCLE
     Route: 048
  10. MELPHALAN. [Concomitant]
     Active Substance: MELPHALAN
     Indication: PLASMA CELL MYELOMA
     Dosage: 200 MILLIGRAM/SQ. METER (CUMULATIVE DOSE 360 MG)
     Route: 065

REACTIONS (6)
  - Sternal fracture [Unknown]
  - Plasma cell myeloma [Unknown]
  - Bundle branch block left [Unknown]
  - Respiratory tract infection [Unknown]
  - Pelvic abscess [Unknown]
  - Therapy partial responder [Unknown]

NARRATIVE: CASE EVENT DATE: 2018
